FAERS Safety Report 16952200 (Version 1)
Quarter: 2019Q4

REPORT INFORMATION
  Report Type: Spontaneous
  Country: US (occurrence: US)
  Receive Date: 20191023
  Receipt Date: 20191023
  Transmission Date: 20200122
  Serious: Yes (Other)
  Sender: FDA-Public Use
  Company Number: US-HIKMA PHARMACEUTICALS USA INC.-US-H14001-19-05404

PATIENT
  Age: 58 Year
  Sex: Female

DRUGS (5)
  1. FOSFOMYCIN [Concomitant]
     Active Substance: FOSFOMYCIN
     Indication: CORONA VIRUS INFECTION
  2. CYCLOPHOSPHAMIDE. [Suspect]
     Active Substance: CYCLOPHOSPHAMIDE
     Indication: PRODUCT USED FOR UNKNOWN INDICATION
     Route: 065
  3. CARNITINE [Concomitant]
     Active Substance: CARNITINE
     Indication: HYPERAMMONAEMIA
     Route: 042
  4. FOSFOMYCIN [Concomitant]
     Active Substance: FOSFOMYCIN
     Indication: PYURIA
  5. FOSFOMYCIN [Concomitant]
     Active Substance: FOSFOMYCIN
     Indication: DYSPNOEA
     Route: 065

REACTIONS (4)
  - Immunodeficiency common variable [Unknown]
  - Cystitis haemorrhagic [Unknown]
  - Ammonia increased [Unknown]
  - Klebsiella infection [Unknown]
